FAERS Safety Report 10276075 (Version 3)
Quarter: 2014Q3

REPORT INFORMATION
  Report Type: Spontaneous
  Country: US (occurrence: US)
  Receive Date: 20140703
  Receipt Date: 20140919
  Transmission Date: 20150326
  Serious: Yes (Life-Threatening, Hospitalization)
  Sender: FDA-Public Use
  Company Number: US-BAYER-2014-099233

PATIENT
  Age: 25 Year
  Sex: Female
  Weight: 54.42 kg

DRUGS (4)
  1. CIPROFLOXACIN HYDROCHLORIDE. [Concomitant]
     Active Substance: CIPROFLOXACIN HYDROCHLORIDE
     Dosage: 500 MG, UNK
  2. MIRENA [Suspect]
     Active Substance: LEVONORGESTREL
     Indication: CONTRACEPTION
     Dosage: 20 MCG/24HR, CONT
     Route: 015
     Dates: start: 20110118, end: 20120820
  3. PROMETHAZINE [Concomitant]
     Active Substance: PROMETHAZINE\PROMETHAZINE HYDROCHLORIDE
     Dosage: 25 MG, UNK
  4. OXYCODONE/APAP [Concomitant]
     Active Substance: ACETAMINOPHEN\OXYCODONE HYDROCHLORIDE

REACTIONS (14)
  - Anorectal discomfort [None]
  - Abdominal pain lower [None]
  - Emotional distress [None]
  - Depression [None]
  - Injury [None]
  - Device dislocation [None]
  - Anhedonia [None]
  - Abdominal injury [None]
  - Ectopic pregnancy with contraceptive device [None]
  - Proctalgia [None]
  - Uterine perforation [None]
  - Anxiety [None]
  - Drug ineffective [None]
  - General physical health deterioration [None]

NARRATIVE: CASE EVENT DATE: 201208
